FAERS Safety Report 5073676-6 (Version None)
Quarter: 2006Q3

REPORT INFORMATION
  Report Type: 
  Country: None (occurrence: None)
  Receive Date: 20060803
  Receipt Date: 20060719
  Transmission Date: 20061208
  Serious: Yes (Hospitalization)
  Sender: FDA-Public Use
  Company Number: 008061

PATIENT
  Age: 76 Year
  Sex: Male
  Weight: 90.7 kg

DRUGS (9)
  1. WARFARIN SODIUM [Suspect]
     Indication: ANTICOAGULANT THERAPY
     Dosage: SEE IMAGE
     Route: 048
     Dates: start: 20060122, end: 20060708
  2. WARFARIN SODIUM [Suspect]
     Indication: ANTICOAGULANT THERAPY
     Dosage: SEE IMAGE
     Route: 048
     Dates: start: 20060717
  3. ASPIRIN [Concomitant]
  4. QUINAPRIL [Concomitant]
  5. PLAVIX [Concomitant]
  6. FUROSEMIDE [Concomitant]
  7. CLONIDINE [Concomitant]
  8. TOPRAL (SULTOPRIDE) [Concomitant]
  9. DIGOXIN [Concomitant]

REACTIONS (5)
  - CONTUSION [None]
  - HAEMATOMA [None]
  - JOINT STIFFNESS [None]
  - OEDEMA PERIPHERAL [None]
  - PAIN IN EXTREMITY [None]
